FAERS Safety Report 7558535-9 (Version None)
Quarter: 2011Q2

REPORT INFORMATION
  Report Type: 
  Country: None (occurrence: None)
  Receive Date: 20110620
  Receipt Date: 20110616
  Transmission Date: 20111010
  Serious: Yes (Hospitalization, Other)
  Sender: FDA-Public Use
  Company Number: FR-BRISTOL-MYERS SQUIBB COMPANY-15739881

PATIENT
  Age: 56 Year
  Sex: Male

DRUGS (3)
  1. CARBOPLATIN [Suspect]
     Indication: HEAD AND NECK CANCER
     Dosage: MOST RECENT INF ON 19OCT2009 70MG/M2 ON THE FIRST 4 DAYS OF A 21 DAY CYCLE BTW 28SEP-19OCT09
     Route: 042
     Dates: start: 20090928
  2. FLUOROURACIL [Suspect]
     Indication: HEAD AND NECK CANCER
     Dosage: MOST RECENT INF ON 19OCT2009 600MG/M2 PER DAY ON THE FIRST 4 DAYS OF A 21 DAY CYCLE
     Route: 042
     Dates: start: 20090928
  3. ERBITUX [Suspect]
     Indication: HEAD AND NECK CANCER
     Dosage: MOST RECENT INF ON 26OCT2009 TOTAL INF:4 FIRST DOSE 400MG/M2(21SEP09-12SEP09)
     Route: 042
     Dates: start: 20090921

REACTIONS (2)
  - RADIATION MUCOSITIS [None]
  - RADIATION SKIN INJURY [None]
